FAERS Safety Report 20690188 (Version 1)
Quarter: 2022Q2

REPORT INFORMATION
  Report Type: Spontaneous
  Country: FR (occurrence: FR)
  Receive Date: 20220408
  Receipt Date: 20220408
  Transmission Date: 20220721
  Serious: Yes (Other)
  Sender: FDA-Public Use
  Company Number: FR-ALLERGAN-2211430US

PATIENT
  Sex: Male
  Weight: 52 kg

DRUGS (4)
  1. CEFTAROLINE FOSAMIL [Suspect]
     Active Substance: CEFTAROLINE FOSAMIL
     Indication: Infection
     Dosage: 400 MG, QD
     Route: 042
     Dates: start: 20210812, end: 20210830
  2. RIFAMPIN [Suspect]
     Active Substance: RIFAMPIN
     Indication: Infection
     Dosage: 600 MG, QD
     Route: 048
     Dates: start: 20210821, end: 20210830
  3. METRONIDAZOLE [Suspect]
     Active Substance: METRONIDAZOLE
     Indication: Lung disorder
     Dosage: 1500 MG, QD
     Route: 042
     Dates: start: 20210824, end: 20210831
  4. PRAVASTATIN SODIUM [Concomitant]
     Active Substance: PRAVASTATIN SODIUM
     Dosage: 10 MG, QD
     Route: 048
     Dates: end: 20210830

REACTIONS (1)
  - Confusional state [Recovered/Resolved]

NARRATIVE: CASE EVENT DATE: 20210831
